FAERS Safety Report 16053616 (Version 1)
Quarter: 2019Q1

REPORT INFORMATION
  Report Type: Spontaneous
  Country: US (occurrence: US)
  Receive Date: 20190308
  Receipt Date: 20190308
  Transmission Date: 20190418
  Serious: No
  Sender: FDA-Public Use
  Company Number: US-PFIZER INC-2019098456

PATIENT
  Age: 49 Year
  Sex: Female

DRUGS (1)
  1. TOVIAZ [Suspect]
     Active Substance: FESOTERODINE FUMARATE
     Indication: BLADDER PAIN
     Dosage: UNK

REACTIONS (3)
  - Bladder spasm [Unknown]
  - Product use in unapproved indication [Unknown]
  - Haematuria [Unknown]
